FAERS Safety Report 20820141 (Version 1)
Quarter: 2022Q2

REPORT INFORMATION
  Report Type: Spontaneous
  Country: US (occurrence: US)
  Receive Date: 20220512
  Receipt Date: 20220512
  Transmission Date: 20220720
  Serious: No
  Sender: FDA-Public Use
  Company Number: US-PFIZER INC-202200203511

PATIENT
  Age: 60 Year
  Sex: Female

DRUGS (2)
  1. XELJANZ [Suspect]
     Active Substance: TOFACITINIB CITRATE
     Dosage: 5 MG
     Dates: start: 20211103
  2. XELJANZ [Suspect]
     Active Substance: TOFACITINIB CITRATE
     Dosage: 5 MG
     Dates: start: 20220101

REACTIONS (10)
  - Product use issue [Unknown]
  - Memory impairment [Unknown]
  - Arthralgia [Unknown]
  - Dizziness [Unknown]
  - Back pain [Unknown]
  - Limb discomfort [Unknown]
  - Swelling face [Unknown]
  - Weight increased [Unknown]
  - COVID-19 [Unknown]
  - Illness [Unknown]
